FAERS Safety Report 4311826-7 (Version None)
Quarter: 2004Q1

REPORT INFORMATION
  Report Type: 
  Country: None (occurrence: None)
  Receive Date: 20040304
  Receipt Date: 20040119
  Transmission Date: 20041129
  Serious: Yes (Life-Threatening, Hospitalization, Other)
  Sender: FDA-Public Use
  Company Number: WAES 0401DEU00090

PATIENT
  Age: 43 Year
  Sex: Female
  Weight: 74 kg

DRUGS (14)
  1. [THERAPY UNSPECIFIED] [Concomitant]
  2. ATROPINE [Concomitant]
  3. DOBUTAMINE HYDROCHLORIDE [Concomitant]
     Dates: start: 20040101
  4. DOPAMINE HYDROCHLORIDE [Concomitant]
     Dates: start: 20040101
  5. EPINEPHRINE HYDROCHLORIDE [Concomitant]
  6. HEPARIN [Concomitant]
     Dates: start: 20040101
  7. METAPROTERENOL SULFATE [Concomitant]
  8. PROPOFOL [Concomitant]
     Indication: ANAESTHESIA
     Dates: start: 20040101, end: 20040101
  9. PROPOFOL [Concomitant]
     Dates: start: 20040101, end: 20040101
  10. VIOXX [Suspect]
     Indication: TIBIA FRACTURE
     Route: 048
     Dates: start: 20040101, end: 20040103
  11. SODIUM BICARBONATE [Concomitant]
  12. SODIUM CHLORIDE [Concomitant]
  13. SUFENTANIL CITRATE [Concomitant]
     Dates: start: 20040101
  14. TINZAPARIN SODIUM [Concomitant]

REACTIONS (5)
  - ADVERSE EVENT [None]
  - HEPATOCELLULAR DAMAGE [None]
  - HEPATOTOXICITY [None]
  - POST PROCEDURAL COMPLICATION [None]
  - PULMONARY EMBOLISM [None]
